FAERS Safety Report 10505287 (Version 1)
Quarter: 2014Q3

REPORT INFORMATION
  Report Type: Spontaneous
  Country: US (occurrence: None)
  Receive Date: 20140915
  Receipt Date: 20140915
  Transmission Date: 20150326
  Serious: Yes (Other)
  Sender: FDA-Public Use
  Company Number: PHEH2013US023857

PATIENT
  Age: 60 Year
  Sex: Male

DRUGS (4)
  1. ACIPHEX (RABERPRAZOLE SODIUM) [Concomitant]
  2. DIOVAN [Concomitant]
     Active Substance: VALSARTAN
  3. VALSARTAN (VALSARTAN) [Suspect]
     Active Substance: VALSARTAN
     Indication: HYPERTENSION
     Dosage: UNK
     Route: 048
  4. NORVASC [Concomitant]
     Active Substance: AMLODIPINE BESYLATE

REACTIONS (2)
  - Drug ineffective [None]
  - Blood pressure increased [None]
